FAERS Safety Report 4408402-4 (Version None)
Quarter: 2004Q3

REPORT INFORMATION
  Report Type: 
  Country: None (occurrence: None)
  Receive Date: 20040722
  Receipt Date: 20040712
  Transmission Date: 20050211
  Serious: Yes (Hospitalization)
  Sender: FDA-Public Use
  Company Number: 207836

PATIENT
  Age: 34 Year
  Sex: Female

DRUGS (10)
  1. HERCEPTIN [Suspect]
     Indication: BREAST CANCER
     Dosage: 280 MG
     Dates: start: 20040623
  2. PACLITAXEL [Suspect]
     Indication: BREAST CANCER
     Dosage: 155 MG,
     Dates: start: 20040616
  3. ANTIBIOTICS (UNKNOWN INGREDIENTS) (ANTIBIOTICS NOS) [Concomitant]
  4. HEPARIN [Concomitant]
  5. HYDROCORTICONE (HYDROCORTISONE) [Concomitant]
  6. CHLOROPYRAMINE HYDROCHLORIDE (CHLOROPYRAMINE HYDROCHLORIDE) [Concomitant]
  7. ALBUTEROL NEBULIZER (ALBUTEROL, ALBUTEROL SULFATE) [Concomitant]
  8. CODEINE (CODEINE) [Concomitant]
  9. SERETIDE (FLUTICASONE PROPIONATE, SALMETEROL XINAFOATE) [Concomitant]
  10. METHADONE HCL [Concomitant]

REACTIONS (3)
  - ANAPHYLACTIC REACTION [None]
  - CATHETER SITE INFLAMMATION [None]
  - SEPSIS [None]
